FAERS Safety Report 8608282-7 (Version None)
Quarter: 2012Q3

REPORT INFORMATION
  Report Type: 
  Country: None (occurrence: None)
  Receive Date: 20120821
  Receipt Date: 20120813
  Transmission Date: 20120928
  Serious: Yes (Hospitalization)
  Sender: FDA-Public Use
  Company Number: DE-JNJFOC-20120807804

PATIENT
  Sex: Female

DRUGS (2)
  1. IBUPROFEN LYSINE [Suspect]
     Route: 048
  2. IBUPROFEN LYSINE [Suspect]
     Indication: PRODUCT USED FOR UNKNOWN INDICATION
     Route: 048

REACTIONS (1)
  - LIP SWELLING [None]
